FAERS Safety Report 16238245 (Version 17)
Quarter: 2021Q3

REPORT INFORMATION
  Report Type: Spontaneous
  Country: US (occurrence: US)
  Receive Date: 20190425
  Receipt Date: 20210712
  Transmission Date: 20211014
  Serious: Yes (Other)
  Sender: FDA-Public Use
  Company Number: US-PFIZER INC-2019155930

PATIENT
  Age: 42 Year
  Sex: Female
  Weight: 95.25 kg

DRUGS (17)
  1. CYMBALTA [Concomitant]
     Active Substance: DULOXETINE HYDROCHLORIDE
     Indication: NEUROPATHY PERIPHERAL
     Dosage: 90 MG
     Route: 048
  2. CLONIDINE. [Concomitant]
     Active Substance: CLONIDINE
     Indication: COMPLEX REGIONAL PAIN SYNDROME
     Dosage: 0.1 MG, 1X/DAY
     Route: 048
  3. LYRICA [Suspect]
     Active Substance: PREGABALIN
     Indication: PAIN
     Dosage: UNK, 4X/DAY (150 QID)
     Dates: start: 2006
  4. LYRICA [Suspect]
     Active Substance: PREGABALIN
     Dosage: UNK, 4X/DAY
  5. FLEXERIL [Concomitant]
     Active Substance: CYCLOBENZAPRINE HYDROCHLORIDE
     Indication: COMPLEX REGIONAL PAIN SYNDROME
  6. LYRICA [Suspect]
     Active Substance: PREGABALIN
     Indication: PAIN IN EXTREMITY
     Dosage: 150 MG, 3X/DAY
     Route: 048
     Dates: start: 200610
  7. ATORVASTATIN [Concomitant]
     Active Substance: ATORVASTATIN
     Indication: BLOOD CHOLESTEROL
     Dosage: 40 MG, 1X/DAY
     Route: 048
  8. LODINE [Concomitant]
     Active Substance: ETODOLAC
     Indication: COMPLEX REGIONAL PAIN SYNDROME
     Dosage: 400 MG, 3X/DAY
     Route: 048
  9. FLEXERIL [Concomitant]
     Active Substance: CYCLOBENZAPRINE HYDROCHLORIDE
     Indication: MUSCLE SPASMS
     Dosage: 10 MG, 1X/DAY
     Route: 048
  10. LYRICA [Suspect]
     Active Substance: PREGABALIN
     Indication: COMPLEX REGIONAL PAIN SYNDROME
     Dosage: 150 MG, 4X/DAY
     Route: 048
     Dates: start: 2005
  11. PARAFON FORTE [Concomitant]
     Active Substance: CHLORZOXAZONE
     Indication: COMPLEX REGIONAL PAIN SYNDROME
     Dosage: UNK, 3X/DAY (100 OR 150 MG TABLET)
     Route: 048
  12. LYRICA [Suspect]
     Active Substance: PREGABALIN
     Dosage: 1 DF, 4X/DAY
  13. TOPAMAX [Concomitant]
     Active Substance: TOPIRAMATE
     Indication: COMPLEX REGIONAL PAIN SYNDROME
     Dosage: 100 MG
     Route: 048
  14. LEXAPRO [Concomitant]
     Active Substance: ESCITALOPRAM OXALATE
     Indication: COMPLEX REGIONAL PAIN SYNDROME
     Dosage: 20 MG, 1X/DAY
     Route: 048
  15. TYLENOL [Concomitant]
     Active Substance: ACETAMINOPHEN
     Indication: PAIN
     Dosage: UNK, AS NEEDED
  16. METFORMIN ER [Concomitant]
     Active Substance: METFORMIN HYDROCHLORIDE
     Indication: DIABETES MELLITUS
     Dosage: 500 MG, 1X/DAY
     Route: 048
  17. PARAFON FORTE [Concomitant]
     Active Substance: CHLORZOXAZONE
     Indication: MUSCLE SPASMS

REACTIONS (5)
  - Sensitivity to weather change [Unknown]
  - Drug dependence [Unknown]
  - Neuralgia [Unknown]
  - Pain [Unknown]
  - Expired product administered [Unknown]

NARRATIVE: CASE EVENT DATE: 20060613
